FAERS Safety Report 5805778-8 (Version None)
Quarter: 2008Q3

REPORT INFORMATION
  Report Type: 
  Country: None (occurrence: None)
  Receive Date: 20080709
  Receipt Date: 20080709
  Transmission Date: 20090109
  Serious: No
  Sender: FDA-Public Use
  Company Number: None

PATIENT
  Age: 57 Year
  Sex: Male
  Weight: 106 kg

DRUGS (1)
  1. METHADONE HCL [Suspect]
     Indication: PAIN

REACTIONS (7)
  - BONE PAIN [None]
  - DIPLOPIA [None]
  - DYSPNOEA [None]
  - HAEMOPTYSIS [None]
  - PRODUCTIVE COUGH [None]
  - RESPIRATORY DEPRESSION [None]
  - SPUTUM DISCOLOURED [None]
